FAERS Safety Report 6294496-0 (Version None)
Quarter: 2009Q3

REPORT INFORMATION
  Report Type: 
  Country: None (occurrence: None)
  Receive Date: 20090803
  Receipt Date: 20090722
  Transmission Date: 20100115
  Serious: Yes (Other)
  Sender: FDA-Public Use
  Company Number: US-PFIZER INC-A124857

PATIENT
  Sex: Male
  Weight: 77 kg

DRUGS (2)
  1. DOXYCYCLINE HYCLATE [Suspect]
     Indication: STAPHYLOCOCCAL INFECTION
     Dosage: UNK
     Dates: start: 19781203, end: 19781207
  2. PENICILLIN [Suspect]
     Indication: STAPHYLOCOCCAL INFECTION
     Dosage: 500 MG, UNK
     Dates: start: 19781207, end: 19781213

REACTIONS (5)
  - ARTHRITIS INFECTIVE [None]
  - HYPERSENSITIVITY [None]
  - OEDEMA PERIPHERAL [None]
  - SKIN HYPERPIGMENTATION [None]
  - VASODILATATION [None]
